FAERS Safety Report 7777893-3 (Version None)
Quarter: 2011Q3

REPORT INFORMATION
  Report Type: 
  Country: None (occurrence: None)
  Receive Date: 20110926
  Receipt Date: 20110916
  Transmission Date: 20111222
  Serious: No
  Sender: FDA-Public Use
  Company Number: US-BIOGENIDEC-2011BI035893

PATIENT
  Sex: Female

DRUGS (2)
  1. MEDICATION (NOS) [Concomitant]
  2. TYSABRI [Suspect]
     Indication: MULTIPLE SCLEROSIS
     Route: 042
     Dates: start: 20100121

REACTIONS (13)
  - PANIC ATTACK [None]
  - INCONTINENCE [None]
  - BALANCE DISORDER [None]
  - POSTURE ABNORMAL [None]
  - FRUSTRATION [None]
  - BACK PAIN [None]
  - ANGER [None]
  - MUSCULOSKELETAL DISORDER [None]
  - HAIR GROWTH ABNORMAL [None]
  - HYPOTRICHOSIS [None]
  - ARTHRALGIA [None]
  - GAIT DISTURBANCE [None]
  - JOINT CREPITATION [None]
